FAERS Safety Report 6139009-9 (Version None)
Quarter: 2009Q1

REPORT INFORMATION
  Report Type: 
  Country: None (occurrence: None)
  Receive Date: 20090327
  Receipt Date: 20090316
  Transmission Date: 20090719
  Serious: Yes (Life-Threatening, Hospitalization, Other)
  Sender: FDA-Public Use
  Company Number: PAR_02379_2008

PATIENT
  Sex: Male
  Weight: 67 kg

DRUGS (3)
  1. IBUPROFEN [Suspect]
     Indication: MYALGIA
     Dosage: (1 DF QD)
     Dates: start: 20080805, end: 20080807
  2. TETANUS VACCINE (TETANUS VACCINE) [Suspect]
     Indication: DRUG USE FOR UNKNOWN INDICATION
     Dosage: (DF)
     Dates: start: 20080701
  3. ACETAMINOPHEN [Suspect]
     Dosage: (UP TO 3 G DAILY ORAL)
     Route: 048
     Dates: start: 20080801

REACTIONS (24)
  - ACNE [None]
  - ASCITES [None]
  - CHLAMYDIA IDENTIFICATION TEST POSITIVE [None]
  - DIARRHOEA [None]
  - GOODPASTURE'S SYNDROME [None]
  - HAEMOLYSIS [None]
  - HUNGER [None]
  - HYPERSENSITIVITY [None]
  - HYPOKALAEMIA [None]
  - HYPONATRAEMIA [None]
  - INFECTION [None]
  - INFLUENZA [None]
  - INITIAL INSOMNIA [None]
  - LIVER FUNCTION TEST ABNORMAL [None]
  - MYOSITIS [None]
  - PLEURAL EFFUSION [None]
  - PULMONARY HAEMORRHAGE [None]
  - PULMONARY OEDEMA [None]
  - PULMONARY RENAL SYNDROME [None]
  - RENAL FAILURE ACUTE [None]
  - THROMBOCYTOPENIA [None]
  - TOXOPLASMOSIS [None]
  - TUBULOINTERSTITIAL NEPHRITIS [None]
  - WEGENER'S GRANULOMATOSIS [None]
